FAERS Safety Report 8450552-X (Version None)
Quarter: 2012Q2

REPORT INFORMATION
  Report Type: 
  Country: None (occurrence: None)
  Receive Date: 20120620
  Receipt Date: 20120612
  Transmission Date: 20120825
  Serious: Yes (Hospitalization)
  Sender: FDA-Public Use
  Company Number: US-BAYER-2011-050855

PATIENT
  Sex: Female
  Weight: 122.45 kg

DRUGS (1)
  1. YASMIN [Suspect]
     Indication: MENSTRUATION DELAYED
     Dosage: UNK
     Dates: start: 20060101, end: 20070101

REACTIONS (13)
  - INJURY [None]
  - GALLBLADDER DISORDER [None]
  - SCAR [None]
  - FLATULENCE [None]
  - DYSPEPSIA [None]
  - ABDOMINAL DISTENSION [None]
  - ANXIETY [None]
  - DEPRESSION [None]
  - DIARRHOEA [None]
  - CHOLECYSTITIS ACUTE [None]
  - PAIN [None]
  - MEDICAL DIET [None]
  - CONSTIPATION [None]
